FAERS Safety Report 8446715 (Version 2)
Quarter: 2013Q2

REPORT INFORMATION
  Report Type: Spontaneous
  Country: US (occurrence: None)
  Receive Date: 20120104
  Receipt Date: 20120508
  Transmission Date: 20140414
  Serious: No
  Sender: FDA-Public Use
  Company Number: 2011HGS-002781

PATIENT
  Age: 35 Year
  Sex: Female
  Weight: 68.49 kg

DRUGS (13)
  1. BENLYSTA [Suspect]
     Indication: SYSTEMIC LUPUS ERYTHEMATOSUS
     Dosage: 1 IN 28 DAYS.
     Route: 041
     Dates: start: 20110923
  2. PREDNISONE [Concomitant]
  3. CARAFATE(SUCRALFATE) (SUCRALFATE) [Concomitant]
  4. TRAMADOL HYDROCHLORIDE [Concomitant]
  5. XANAX [Concomitant]
  6. ABILIFY(ARIPIPRAZOLE)(ARIPIPRAZOLE) [Concomitant]
  7. HCTZ(HYDROCHLOROTHIAZIDE)(HYDROCHLOROTHIAZIDE) [Concomitant]
  8. LOPID [Concomitant]
  9. OMEPRAZOLE [Concomitant]
  10. FOLIC ACID [Concomitant]
  11. PREMARIN(ESTROGENS CONJUGATED)(ESTROGENS CONJUGATED) [Concomitant]
  12. POTASSIUM ER(POTASSIUM) (POTASSIUM) [Concomitant]
  13. PRESTIQUE(ANTIDEPRESSANTS) (DESVENLAFAXINE) [Concomitant]

REACTIONS (2)
  - NAUSEA [None]
  - PRURITUS [None]
